FAERS Safety Report 4406687-1 (Version None)
Quarter: 2004Q3

REPORT INFORMATION
  Report Type: 
  Country: None (occurrence: None)
  Receive Date: 20040715
  Receipt Date: 20040702
  Transmission Date: 20050211
  Serious: Yes (Hospitalization)
  Sender: FDA-Public Use
  Company Number: 2003SE01321

PATIENT
  Age: 94 Year
  Sex: Female

DRUGS (6)
  1. ZESTORETIC [Suspect]
     Indication: HYPERTENSION
     Dosage: 1 DF DAILY PO
     Route: 048
  2. BURINEX [Suspect]
     Indication: CARDIAC FAILURE
     Dosage: 1 MG DAILY PO
     Route: 048
     Dates: end: 20030201
  3. FUROSEMIDE [Suspect]
     Indication: CARDIAC FAILURE
     Dosage: 40 MG DAILY PO
     Route: 048
     Dates: end: 20030201
  4. TOILAX [Suspect]
     Indication: CONSTIPATION
     Dosage: 5 MG DAILY PO
     Route: 048
  5. SOBRIL [Concomitant]
  6. IMOVANE [Concomitant]

REACTIONS (8)
  - BLOOD CREATININE INCREASED [None]
  - C-REACTIVE PROTEIN INCREASED [None]
  - DEHYDRATION [None]
  - DRUG INTERACTION [None]
  - ELECTROLYTE IMBALANCE [None]
  - HYPONATRAEMIA [None]
  - HYPOTENSION [None]
  - PNEUMONIA [None]
